FAERS Safety Report 16661389 (Version 2)
Quarter: 2019Q4

REPORT INFORMATION
  Report Type: Report from Study
  Country: BE (occurrence: BE)
  Receive Date: 20190802
  Receipt Date: 20191224
  Transmission Date: 20200122
  Serious: Yes (Death, Hospitalization, Other)
  Sender: FDA-Public Use
  Company Number: BE-BRISTOL-MYERS SQUIBB COMPANY-BMS-2019-074228

PATIENT
  Age: 49 Year
  Sex: Female
  Weight: 46.6 kg

DRUGS (2)
  1. NIVOLUMAB [Suspect]
     Active Substance: NIVOLUMAB
     Indication: ENDOMETRIAL CANCER METASTATIC
     Dosage: 2 MILLIGRAM/KILOGRAM, Q2WK
     Route: 042
     Dates: start: 20190118
  2. NIVOLUMAB [Suspect]
     Active Substance: NIVOLUMAB
     Indication: DNA MISMATCH REPAIR PROTEIN GENE MUTATION
     Route: 065

REACTIONS (4)
  - Enterococcal sepsis [Recovered/Resolved]
  - Malignant neoplasm progression [Fatal]
  - Intestinal obstruction [Unknown]
  - Infection [Recovered/Resolved]

NARRATIVE: CASE EVENT DATE: 20190208
